FAERS Safety Report 4574797-4 (Version None)
Quarter: 2005Q1

REPORT INFORMATION
  Report Type: 
  Country: None (occurrence: None)
  Receive Date: 20050208
  Receipt Date: 20040629
  Transmission Date: 20050727
  Serious: No
  Sender: FDA-Public Use
  Company Number: US-GLAXOSMITHKLINE-A0516433A

PATIENT
  Age: 74 Year
  Sex: Female

DRUGS (4)
  1. PAXIL CR [Suspect]
     Indication: FIBROMYALGIA
     Dosage: 12.5MG PER DAY
     Route: 048
     Dates: start: 20040625, end: 20040627
  2. PREVACID [Concomitant]
  3. VASOTEC [Concomitant]
  4. LIPITOR [Concomitant]

REACTIONS (1)
  - URTICARIA [None]
